FAERS Safety Report 8395688-7 (Version None)
Quarter: 2012Q2

REPORT INFORMATION
  Report Type: 
  Country: None (occurrence: None)
  Receive Date: 20120530
  Receipt Date: 20120228
  Transmission Date: 20120825
  Serious: No
  Sender: FDA-Public Use
  Company Number: US-GLAXOSMITHKLINE-A0967880A

PATIENT
  Age: 48 Year
  Sex: Female
  Weight: 45.5 kg

DRUGS (3)
  1. VENTOLIN [Suspect]
     Indication: PNEUMOTHORAX
     Dosage: 1PUFF AT NIGHT
     Route: 055
     Dates: start: 20120127, end: 20120201
  2. SPIRIVA [Concomitant]
  3. PROVENTIL [Suspect]
     Indication: PRODUCT USED FOR UNKNOWN INDICATION
     Route: 055

REACTIONS (5)
  - DRUG INEFFECTIVE [None]
  - HEART RATE IRREGULAR [None]
  - HEART RATE INCREASED [None]
  - PRODUCT QUALITY ISSUE [None]
  - EXPIRED DRUG ADMINISTERED [None]
